FAERS Safety Report 12958903 (Version 1)
Quarter: 2016Q4

REPORT INFORMATION
  Report Type: Spontaneous
  Country: US (occurrence: US)
  Receive Date: 20161117
  Receipt Date: 20161117
  Transmission Date: 20170207
  Serious: No
  Sender: FDA-Public Use
  Company Number: None

PATIENT
  Age: 40 Year
  Sex: Female

DRUGS (14)
  1. INSULIN ASPART [Suspect]
     Active Substance: INSULIN ASPART
     Indication: HYPERKALAEMIA
     Dosage: 10 UNITS
     Route: 042
     Dates: start: 20160919, end: 20160919
  2. HEPARIN [Concomitant]
     Active Substance: HEPARIN SODIUM
  3. HYDROMORPHONE [Concomitant]
     Active Substance: HYDROMORPHONE
  4. MORPHINE [Concomitant]
     Active Substance: MORPHINE
  5. AMIKACIN [Concomitant]
     Active Substance: AMIKACIN
  6. CALCIUM GLUCONATE. [Concomitant]
     Active Substance: CALCIUM GLUCONATE
  7. VASOPRESSION [Concomitant]
  8. PANTOPRAZOLE [Concomitant]
     Active Substance: PANTOPRAZOLE SODIUM
  9. DEXTROSE. [Concomitant]
     Active Substance: DEXTROSE
  10. HEPARIN [Concomitant]
     Active Substance: HEPARIN SODIUM
  11. DIPHENHYDRAMINE. [Concomitant]
     Active Substance: DIPHENHYDRAMINE
  12. MEROPENEM. [Concomitant]
     Active Substance: MEROPENEM
  13. NOREPINEPHRINE [Concomitant]
     Active Substance: NOREPINEPHRINE\NOREPINEPHRINE BITARTRATE
  14. INSULIN ASPART [Concomitant]
     Active Substance: INSULIN ASPART

REACTIONS (1)
  - Blood glucose abnormal [None]

NARRATIVE: CASE EVENT DATE: 20160919
